FAERS Safety Report 9323967 (Version 3)
Quarter: 2013Q2

REPORT INFORMATION
  Report Type: Spontaneous
  Country: US (occurrence: US)
  Receive Date: 20130603
  Receipt Date: 20130628
  Transmission Date: 20140414
  Serious: Yes (Hospitalization)
  Sender: FDA-Public Use
  Company Number: US-PFIZER INC-2013167298

PATIENT
  Age: 56 Year
  Sex: Female
  Weight: 72.11 kg

DRUGS (7)
  1. PROTONIX [Suspect]
     Indication: GASTROOESOPHAGEAL REFLUX DISEASE
     Dosage: 40 MG, 1X/DAY
     Route: 048
  2. LISINOPRIL [Concomitant]
     Dosage: 10 MG, 1X/DAY
  3. DILTIAZEM HYDROCHLORIDE [Concomitant]
     Dosage: 240 MG, 1X/DAY
  4. WARFARIN [Concomitant]
     Dosage: UNK (ONE AND HALF TABLETS), 1X/DAY
  5. AMITRIPTYLINE [Concomitant]
     Indication: FIBROMYALGIA
     Dosage: 100 MG, 1X/DAY
  6. TRAMADOL [Concomitant]
     Indication: PAIN
     Dosage: 50 MG, AS NEEDED
  7. NASONEX [Concomitant]
     Indication: HYPERSENSITIVITY
     Dosage: UNK, 1X/DAY

REACTIONS (4)
  - Pneumonia [Unknown]
  - Thrombosis [Unknown]
  - Pain in extremity [Unknown]
  - Dyspnoea [Unknown]
